FAERS Safety Report 21789743 (Version 1)
Quarter: 2022Q4

REPORT INFORMATION
  Report Type: Spontaneous
  Country: US (occurrence: None)
  Receive Date: 20221228
  Receipt Date: 20221228
  Transmission Date: 20230113
  Serious: No
  Sender: FDA-Public Use
  Company Number: None

PATIENT
  Age: 82 Year
  Sex: Female
  Weight: 68 kg

DRUGS (3)
  1. CEFAZOLIN [Suspect]
     Active Substance: CEFAZOLIN
     Dosage: FREQUENCY : 3 TIMES A DAY;?
     Route: 042
     Dates: start: 20221215, end: 20221219
  2. IOPAMIDOL [Concomitant]
     Active Substance: IOPAMIDOL
  3. LASIX [Concomitant]
     Active Substance: FUROSEMIDE

REACTIONS (9)
  - Chest pain [None]
  - Dyspnoea [None]
  - Palpitations [None]
  - Erythema [None]
  - Peripheral swelling [None]
  - Cellulitis [None]
  - Bronchospasm [None]
  - Hypersensitivity [None]
  - Rash pruritic [None]

NARRATIVE: CASE EVENT DATE: 20221219
